FAERS Safety Report 9418064 (Version 2)
Quarter: 2013Q3

REPORT INFORMATION
  Report Type: Spontaneous
  Country: BR (occurrence: BR)
  Receive Date: 20130724
  Receipt Date: 20130814
  Transmission Date: 20140515
  Serious: Yes (Hospitalization)
  Sender: FDA-Public Use
  Company Number: BR-B.I. PHARMACEUTICALS,INC./RIDGEFIELD-2013-BR-00853BR

PATIENT
  Age: 73 Year
  Sex: Male

DRUGS (5)
  1. PRADAXA [Suspect]
     Indication: CEREBROVASCULAR ACCIDENT PROPHYLAXIS
     Dosage: 300 MG
     Route: 048
     Dates: start: 201108
  2. PRADAXA [Suspect]
     Indication: ATRIAL FIBRILLATION
  3. METOPROLOL [Concomitant]
     Indication: HEART RATE IRREGULAR
  4. LOSARTAN [Concomitant]
     Indication: HYPERTENSION
  5. MEDICATION TO DYSLIPIDEMIA [Concomitant]
     Indication: DYSLIPIDAEMIA

REACTIONS (2)
  - Renal haematoma [Recovered/Resolved]
  - Back pain [Recovered/Resolved]
